FAERS Safety Report 7889523-0 (Version None)
Quarter: 2011Q4

REPORT INFORMATION
  Report Type: 
  Country: None (occurrence: None)
  Receive Date: 20111103
  Receipt Date: 20111028
  Transmission Date: 20120403
  Serious: Yes (Death)
  Sender: FDA-Public Use
  Company Number: TN-SANOFI-AVENTIS-2011SA071148

PATIENT
  Age: 72 Year
  Sex: Female

DRUGS (12)
  1. MULTI-VITAMINS [Concomitant]
     Route: 048
     Dates: end: 20110620
  2. CLOPIDOGREL BISULFATE [Suspect]
     Indication: ACUTE CORONARY SYNDROME
     Route: 048
     Dates: start: 20110222, end: 20110620
  3. CLOPIDOGREL BISULFATE [Suspect]
     Indication: STENT PLACEMENT
     Route: 048
     Dates: start: 20110222, end: 20110620
  4. FORMIDIAB [Concomitant]
     Route: 048
     Dates: end: 20110620
  5. CANDESARTAN CILEXETIL AND HYDROCHLOROTHIAZIDE [Concomitant]
     Route: 048
     Dates: end: 20110620
  6. LYRICA [Concomitant]
     Route: 048
     Dates: end: 20110620
  7. INSULIN [Concomitant]
     Route: 058
     Dates: end: 20110620
  8. ASPEGIC 325 [Concomitant]
     Route: 048
     Dates: end: 20110620
  9. INSULATARD NPH HUMAN [Concomitant]
     Route: 058
     Dates: end: 20110620
  10. MONICOR [Concomitant]
     Route: 048
     Dates: end: 20110620
  11. FAMOTIDINE [Concomitant]
     Route: 048
     Dates: end: 20110620
  12. CORVASAL [Concomitant]
     Route: 048
     Dates: end: 20110620

REACTIONS (1)
  - CARDIAC FAILURE [None]
